FAERS Safety Report 7918311-1 (Version None)
Quarter: 2011Q4

REPORT INFORMATION
  Report Type: 
  Country: None (occurrence: None)
  Receive Date: 20111116
  Receipt Date: 20111109
  Transmission Date: 20120403
  Serious: Yes (Other)
  Sender: FDA-Public Use
  Company Number: FR-ASTRAZENECA-2011SE58079

PATIENT
  Age: 51 Year
  Sex: Female
  Weight: 48 kg

DRUGS (3)
  1. ORAL CONTRACEPTIVE [Concomitant]
  2. ZOLMITRIPTAN [Suspect]
     Indication: MIGRAINE
     Route: 048
     Dates: start: 20060703
  3. IMOVANE [Concomitant]

REACTIONS (2)
  - PELVIC DISCOMFORT [None]
  - METRORRHAGIA [None]
